FAERS Safety Report 13381719 (Version 1)
Quarter: 2017Q1

REPORT INFORMATION
  Report Type: Spontaneous
  Country: US (occurrence: US)
  Receive Date: 20170329
  Receipt Date: 20170329
  Transmission Date: 20170429
  Serious: Yes (Life-Threatening, Hospitalization)
  Sender: FDA-Public Use
  Company Number: None

PATIENT
  Age: 47 Year
  Sex: Female
  Weight: 68.04 kg

DRUGS (12)
  1. AVASTIN [Concomitant]
     Active Substance: BEVACIZUMAB
  2. ASPIRIN. [Concomitant]
     Active Substance: ASPIRIN
  3. HUMALOG [Concomitant]
     Active Substance: INSULIN LISPRO
  4. CALCIUM [Concomitant]
     Active Substance: CALCIUM
  5. LUCENTIS [Suspect]
     Active Substance: RANIBIZUMAB
     Indication: RETINOPATHY
     Dosage: EVERY 4-6 WK OR AS NEEDED
  6. LEVOTHYROXINE. [Concomitant]
     Active Substance: LEVOTHYROXINE
  7. TRIESENCE [Suspect]
     Active Substance: TRIAMCINOLONE ACETONIDE
  8. DICYCLOMINE [Concomitant]
     Active Substance: DICYCLOMINE HYDROCHLORIDE
  9. INSULIN PUMP [Concomitant]
     Active Substance: INSULIN NOS
  10. TYLENOL [Concomitant]
     Active Substance: ACETAMINOPHEN
  11. FISH OIL [Concomitant]
     Active Substance: FISH OIL
  12. FLEXERIL [Concomitant]
     Active Substance: CYCLOBENZAPRINE HYDROCHLORIDE

REACTIONS (5)
  - Confusional state [None]
  - Brain neoplasm [None]
  - Headache [None]
  - Speech disorder [None]
  - Muscular weakness [None]

NARRATIVE: CASE EVENT DATE: 20141025
